FAERS Safety Report 10433735 (Version 3)
Quarter: 2014Q3

REPORT INFORMATION
  Report Type: Report from Study
  Country: US (occurrence: US)
  Receive Date: 20140905
  Receipt Date: 20140929
  Transmission Date: 20150326
  Serious: Yes (Death)
  Sender: FDA-Public Use
  Company Number: US-SA-2014SA120384

PATIENT
  Age: 67 Year
  Sex: Male
  Weight: 66.22 kg

DRUGS (9)
  1. TIMOLOL [Concomitant]
     Active Substance: TIMOLOL
  2. CLOFARABINE [Suspect]
     Active Substance: CLOFARABINE
     Indication: ACUTE MYELOID LEUKAEMIA
     Dosage: 2 CYCLES OF INDUCTION, 1 CYCLE OF CONSOLIDATION
     Route: 065
     Dates: start: 20140514
  3. NEULASTA [Concomitant]
     Active Substance: PEGFILGRASTIM
  4. CIPRO [Concomitant]
     Active Substance: CIPROFLOXACIN HYDROCHLORIDE
  5. PEPCID [Concomitant]
     Active Substance: FAMOTIDINE
  6. CLOFARABINE [Suspect]
     Active Substance: CLOFARABINE
     Indication: ACUTE MYELOID LEUKAEMIA
     Dosage: TOTAL DOSE ADMINISTERED THIS COURSE: 175 MG
     Route: 065
     Dates: start: 20140804, end: 20140808
  7. BLOOD, WHOLE [Concomitant]
     Active Substance: WHOLE BLOOD
  8. ACYCLOVIR. [Concomitant]
     Active Substance: ACYCLOVIR
  9. PLATELETS [Concomitant]
     Active Substance: HUMAN PLATELET, ALLOGENIC

REACTIONS (1)
  - Death [Fatal]

NARRATIVE: CASE EVENT DATE: 20140820
